FAERS Safety Report 8512533-7 (Version None)
Quarter: 2012Q3

REPORT INFORMATION
  Report Type: 
  Country: None (occurrence: None)
  Receive Date: 20120716
  Receipt Date: 20120706
  Transmission Date: 20120928
  Serious: Yes (Hospitalization)
  Sender: FDA-Public Use
  Company Number: CN-GLAXOSMITHKLINE-B0814738A

PATIENT
  Sex: Male
  Weight: 43 kg

DRUGS (1)
  1. BACTROBAN [Suspect]
     Indication: DERMATITIS ATOPIC
     Dosage: 1PCT TWICE PER DAY
     Route: 061
     Dates: start: 20110713, end: 20110713

REACTIONS (3)
  - WHEEZING [None]
  - DYSPNOEA [None]
  - CHEST DISCOMFORT [None]
